FAERS Safety Report 4637877-0 (Version None)
Quarter: 2005Q2

REPORT INFORMATION
  Report Type: 
  Country: None (occurrence: None)
  Receive Date: 20050418
  Receipt Date: 20050307
  Transmission Date: 20051028
  Serious: Yes (Other)
  Sender: FDA-Public Use
  Company Number: PHEH2005US02884

PATIENT
  Age: 58 Year
  Sex: Female
  Weight: 83 kg

DRUGS (3)
  1. GLEEVEC [Suspect]
     Indication: CHRONIC MYELOID LEUKAEMIA
     Dosage: 600 MG, QD
     Route: 048
     Dates: start: 20020501
  2. NEURONTIN [Concomitant]
     Dosage: 300 MG, BID
     Route: 048
  3. CELEXA [Concomitant]
     Dosage: 40 MG, QD
     Route: 048

REACTIONS (4)
  - CERVICAL DYSPLASIA [None]
  - HUMAN PAPILLOMA VIRUS TEST POSITIVE [None]
  - SMEAR CERVIX ABNORMAL [None]
  - VAGINITIS ATROPHIC [None]
